FAERS Safety Report 7957142-3 (Version None)
Quarter: 2011Q4

REPORT INFORMATION
  Report Type: 
  Country: None (occurrence: None)
  Receive Date: 20111205
  Receipt Date: 20111201
  Transmission Date: 20120403
  Serious: Yes (Hospitalization)
  Sender: FDA-Public Use
  Company Number: AU-ROCHE-802698

PATIENT
  Age: 58 Year
  Sex: Male
  Weight: 134 kg

DRUGS (4)
  1. PERINDOPRIL ERBUMINE [Concomitant]
  2. VEMURAFENIB [Suspect]
     Indication: METASTATIC MALIGNANT MELANOMA
     Dosage: DATE OF LAST DOSE PRIOR TO SAE WAS:15 SEP 2011
     Route: 048
     Dates: start: 20110804, end: 20110916
  3. NAPROXEN [Concomitant]
  4. NEXIUM [Concomitant]

REACTIONS (2)
  - HEPATIC ENZYME INCREASED [None]
  - HEADACHE [None]
